FAERS Safety Report 7374691-X (Version None)
Quarter: 2011Q1

REPORT INFORMATION
  Report Type: 
  Country: None (occurrence: None)
  Receive Date: 20110325
  Receipt Date: 20100723
  Transmission Date: 20110831
  Serious: No
  Sender: FDA-Public Use
  Company Number: US-MYLANLABS-2010S1013523

PATIENT
  Age: 32 Year
  Sex: Male
  Weight: 99.34 kg

DRUGS (3)
  1. FENTANYL-100 [Suspect]
     Indication: INTERVERTEBRAL DISC DEGENERATION
     Dosage: CHANGED Q 72
     Route: 062
     Dates: start: 20090501
  2. FENTANYL-100 [Suspect]
     Indication: BACK PAIN
     Dosage: CHANGED Q 72
     Route: 062
     Dates: start: 20090501
  3. FENTANYL-100 [Suspect]
     Indication: NEUROPATHY PERIPHERAL
     Dosage: CHANGED Q 72
     Route: 062
     Dates: start: 20090501

REACTIONS (3)
  - APPLICATION SITE PAIN [None]
  - APPLICATION SITE PRURITUS [None]
  - APPLICATION SITE ERYTHEMA [None]
